FAERS Safety Report 24327346 (Version 1)
Quarter: 2024Q3

REPORT INFORMATION
  Report Type: Spontaneous
  Country: US (occurrence: US)
  Receive Date: 20240917
  Receipt Date: 20240917
  Transmission Date: 20241017
  Serious: Yes (Death, Hospitalization)
  Sender: CHEPLAPHARM
  Company Number: US-BAYER-200827776NA

PATIENT
  Age: 50 Year
  Sex: Male
  Weight: 84 kg

DRUGS (8)
  1. CAPECITABINE [Suspect]
     Active Substance: CAPECITABINE
     Indication: Bile duct cancer
  2. SORAFENIB [Suspect]
     Active Substance: SORAFENIB
     Indication: Bile duct cancer
  3. OXALIPLATIN [Suspect]
     Active Substance: OXALIPLATIN
     Indication: Bile duct cancer
  4. LASIX [Concomitant]
     Active Substance: FUROSEMIDE
  5. DILAUDID [Concomitant]
     Active Substance: HYDROMORPHONE HYDROCHLORIDE
  6. ALDACTONE [Concomitant]
     Active Substance: SPIRONOLACTONE
  7. FENTANYL [Concomitant]
     Active Substance: FENTANYL\FENTANYL CITRATE
  8. PROCHLORPERAZINE MALEATE [Concomitant]
     Active Substance: PROCHLORPERAZINE MALEATE

REACTIONS (14)
  - Death [Fatal]
  - Activated partial thromboplastin time prolonged [Unknown]
  - Blood glucose decreased [Unknown]
  - Coagulopathy [Unknown]
  - Hypotension [Unknown]
  - Pneumonia [Unknown]
  - Thrombocytopenia [Unknown]
  - Respiratory failure [Unknown]
  - Oedema peripheral [Unknown]
  - Prothrombin level increased [Unknown]
  - Multiple organ dysfunction syndrome [Unknown]
  - Sepsis [Unknown]
  - Hypoxia [Unknown]
  - Off label use [Recovered/Resolved]
